FAERS Safety Report 18150141 (Version 1)
Quarter: 2020Q3

REPORT INFORMATION
  Report Type: Spontaneous
  Country: US (occurrence: US)
  Receive Date: 20200813
  Receipt Date: 20200813
  Transmission Date: 20201103
  Serious: Yes (Hospitalization)
  Sender: FDA-Public Use
  Company Number: None

PATIENT
  Age: 65 Year
  Sex: Female

DRUGS (7)
  1. BENAZEPRIL [Concomitant]
     Active Substance: BENAZEPRIL HYDROCHLORIDE
  2. CEFDINIR. [Concomitant]
     Active Substance: CEFDINIR
  3. CEFUROXIME. [Concomitant]
     Active Substance: CEFUROXIME
  4. AZITHROMYCIN ANHYDROUS. [Concomitant]
     Active Substance: AZITHROMYCIN ANHYDROUS
  5. BENZONATATE. [Concomitant]
     Active Substance: BENZONATATE
  6. HUMIRA [Suspect]
     Active Substance: ADALIMUMAB
     Indication: RHEUMATOID ARTHRITIS
     Route: 058
     Dates: start: 20160429
  7. BISOPROL FUM [Concomitant]
     Active Substance: BISOPROLOL FUMARATE

REACTIONS (3)
  - Pain [None]
  - Illness [None]
  - Peripheral swelling [None]

NARRATIVE: CASE EVENT DATE: 202005
